FAERS Safety Report 10197159 (Version 1)
Quarter: 2014Q2

REPORT INFORMATION
  Report Type: Spontaneous
  Country: US (occurrence: None)
  Receive Date: 20140523
  Receipt Date: 20140523
  Transmission Date: 20141212
  Serious: Yes (Hospitalization)
  Sender: FDA-Public Use
  Company Number: None

PATIENT
  Age: 43 Year
  Sex: Female
  Weight: 90.72 kg

DRUGS (1)
  1. XARELTO 15MG JANSSEN [Suspect]
     Indication: DEEP VEIN THROMBOSIS
     Dosage: 1 PILL TWICE DAILY TAKEN BY MOUTH
     Route: 048
     Dates: start: 20140504, end: 20140522

REACTIONS (6)
  - Palpitations [None]
  - Pain [None]
  - Peripheral swelling [None]
  - Peripheral swelling [None]
  - Abdominal distension [None]
  - Abasia [None]
